FAERS Safety Report 8620195-3 (Version None)
Quarter: 2012Q3

REPORT INFORMATION
  Report Type: 
  Country: None (occurrence: None)
  Receive Date: 20120816
  Receipt Date: 20120816
  Transmission Date: 20120928
  Serious: Yes (Other)
  Sender: FDA-Public Use
  Company Number: None

PATIENT
  Age: 68 Year
  Sex: Female

DRUGS (19)
  1. VITAMIN D [Concomitant]
  2. FERROUS SULFATE TAB [Concomitant]
  3. FLONASE [Concomitant]
  4. BACLOFEN [Concomitant]
  5. NEFAZODONE HCL [Concomitant]
  6. TAGAMET [Concomitant]
  7. MELATONIN [Concomitant]
  8. MAGNESIUM SULFATE [Concomitant]
  9. VITAMIN B6 [Concomitant]
  10. VITAMIN B-12 [Concomitant]
  11. DESONIDE CREAM [Concomitant]
  12. ASPIRIN [Concomitant]
  13. AMBIEN [Concomitant]
  14. METRONIDAZOLE [Concomitant]
  15. FOLIC ACID [Concomitant]
  16. CYMBALTA [Suspect]
     Indication: MUSCLE SPASMS
     Dosage: 30MG ONCE A DAY PO  1 DOSE
     Route: 048
     Dates: start: 20120807, end: 20120807
  17. ESTRADIOL [Concomitant]
  18. CALCIUM CITRATE [Concomitant]
  19. AYGESTIN [Concomitant]

REACTIONS (4)
  - MUSCLE SPASMS [None]
  - OESOPHAGEAL SPASM [None]
  - GAIT DISTURBANCE [None]
  - MUSCULOSKELETAL PAIN [None]
